FAERS Safety Report 20634398 (Version 1)
Quarter: 2022Q1

REPORT INFORMATION
  Report Type: Report from Study
  Country: EG (occurrence: EG)
  Receive Date: 20220325
  Receipt Date: 20220325
  Transmission Date: 20220423
  Serious: Yes (Other)
  Sender: FDA-Public Use
  Company Number: EG-NOVARTISPH-NVSC2022EG066010

PATIENT
  Age: 41 Year
  Sex: Female

DRUGS (4)
  1. GILENYA [Suspect]
     Active Substance: FINGOLIMOD HYDROCHLORIDE
     Indication: Multiple sclerosis
     Dosage: 0.5 MG, QD
     Route: 048
     Dates: start: 20220313
  2. PREGAVALEX [Concomitant]
     Indication: Hernia
     Dosage: UNK UNK, QD
     Route: 065
     Dates: start: 20211201
  3. POTASSIUM [Concomitant]
     Active Substance: POTASSIUM
     Indication: Supplementation therapy
     Dosage: UNK UNK, BID
     Route: 065
     Dates: start: 202107
  4. CALCIUM EFFERVESCENS [Concomitant]
     Indication: Supplementation therapy
     Dosage: UNK UNK, BID
     Route: 065
     Dates: start: 202107

REACTIONS (3)
  - Abdominal pain upper [Not Recovered/Not Resolved]
  - Limb discomfort [Not Recovered/Not Resolved]
  - Dyskinesia [Not Recovered/Not Resolved]

NARRATIVE: CASE EVENT DATE: 20220313
